FAERS Safety Report 8528763-4 (Version None)
Quarter: 2012Q3

REPORT INFORMATION
  Report Type: 
  Country: None (occurrence: None)
  Receive Date: 20120723
  Receipt Date: 20120702
  Transmission Date: 20120928
  Serious: Yes (Hospitalization, Disabling, Other)
  Sender: FDA-Public Use
  Company Number: DK-009507513-1106DNK00009

PATIENT

DRUGS (5)
  1. AMLODIPIN ACTAVIS (AMLODIPINE BESYLATE) [Concomitant]
     Indication: HYPERTENSION
  2. JANUVIA [Suspect]
     Dosage: DOSIS: 100 MG X 1, STYRKE: 100 MG
     Route: 048
     Dates: start: 20100129, end: 20110621
  3. ENALAPRIL MALEATE [Concomitant]
     Indication: HYPERTENSION
     Route: 048
  4. METFORMIN ACTAVIS [Concomitant]
     Indication: DIABETES MELLITUS
     Route: 048
  5. GLIMEPIRIDE [Concomitant]
     Indication: DIABETES MELLITUS
     Route: 048

REACTIONS (14)
  - PYELONEPHRITIS [None]
  - PSEUDOCYST [None]
  - MEMORY IMPAIRMENT [None]
  - FAECES DISCOLOURED [None]
  - GAIT DISTURBANCE [None]
  - WEIGHT DECREASED [None]
  - CHROMATURIA [None]
  - INFECTION [None]
  - CEREBRAL THROMBOSIS [None]
  - VOMITING [None]
  - ABDOMINAL PAIN [None]
  - SEPSIS [None]
  - PANCREATITIS NECROTISING [None]
  - NAUSEA [None]
